FAERS Safety Report 4823613-1 (Version None)
Quarter: 2005Q4

REPORT INFORMATION
  Report Type: 
  Country: None (occurrence: None)
  Receive Date: 20051107
  Receipt Date: 20051027
  Transmission Date: 20060501
  Serious: Yes (Disabling, Other)
  Sender: FDA-Public Use
  Company Number: 107932ISR

PATIENT
  Age: 27 Year
  Sex: Female

DRUGS (2)
  1. GLATIRAMER ACETATE [Suspect]
     Indication: MULTIPLE SCLEROSIS
     Dosage: 20 MILLIGRAM
     Route: 058
     Dates: start: 20021001, end: 20051024
  2. MONOSTEP [Concomitant]

REACTIONS (9)
  - DIZZINESS [None]
  - DRUG INTOLERANCE [None]
  - INJECTION SITE BRUISING [None]
  - INJECTION SITE DISCOLOURATION [None]
  - INJECTION SITE HAEMORRHAGE [None]
  - INJECTION SITE INFECTION [None]
  - INJECTION SITE NECROSIS [None]
  - INJECTION SITE SCAR [None]
  - SKIN NECROSIS [None]
